FAERS Safety Report 9410244 (Version 1)
Quarter: 2013Q3

REPORT INFORMATION
  Report Type: Spontaneous
  Country: HR (occurrence: HR)
  Receive Date: 20130719
  Receipt Date: 20130719
  Transmission Date: 20140515
  Serious: Yes (Hospitalization)
  Sender: FDA-Public Use
  Company Number: HR-ROXANE LABORATORIES, INC.-2013-RO-01181RO

PATIENT
  Age: 23 Year
  Sex: Female
  Weight: 53 kg

DRUGS (1)
  1. OXCARBAZEPINE [Suspect]
     Indication: CONVULSION
     Dosage: 600 MG
     Dates: start: 20070419, end: 20070515

REACTIONS (1)
  - Drug-induced liver injury [Recovered/Resolved]
